FAERS Safety Report 7844807 (Version 3)
Quarter: 2014Q1

REPORT INFORMATION
  Report Type: Spontaneous
  Country: AR (occurrence: AR)
  Receive Date: 20110308
  Receipt Date: 20140109
  Transmission Date: 20141002
  Serious: Yes (Hospitalization, Other)
  Sender: FDA-Public Use
  Company Number: AR-AMGEN-ARGSP2011010071

PATIENT
  Age: 65 Year
  Sex: Female
  Weight: 98 kg

DRUGS (3)
  1. ENBREL [Suspect]
     Indication: RHEUMATOID ARTHRITIS
     Dosage: 25 MG, 2X/WEEK
     Route: 058
     Dates: start: 20061206
  2. SULFASALAZINE [Concomitant]
     Dosage: UNK
     Route: 065
  3. METFORMIN [Concomitant]
     Dosage: UNK

REACTIONS (7)
  - Fistula [Not Recovered/Not Resolved]
  - Decreased immune responsiveness [Unknown]
  - Visual impairment [Unknown]
  - Inflammation [Unknown]
  - Neoplasm [Unknown]
  - Sinusitis [Recovering/Resolving]
  - Localised infection [Recovering/Resolving]
